FAERS Safety Report 5599459-6 (Version None)
Quarter: 2007Q4

REPORT INFORMATION
  Report Type: 
  Country: None (occurrence: None)
  Receive Date: 20071226
  Receipt Date: 20070601
  Transmission Date: 20080405
  Serious: Yes (Other)
  Sender: FDA-Public Use
  Company Number: PHEH2007US08155

PATIENT
  Age: 42 Year
  Sex: Female
  Weight: 101.6 kg

DRUGS (4)
  1. VIVELLE [Suspect]
     Indication: MENOPAUSAL SYMPTOMS
     Dosage: 0.05MG/DAY, TRANSDERMAL
     Route: 062
  2. PREMPRO [Suspect]
     Indication: OOPHORECTOMY
     Dosage: ORAL
     Route: 048
     Dates: start: 20020101, end: 20020101
  3. PREMARIN [Suspect]
     Indication: OOPHORECTOMY
     Dosage: ORAL
     Route: 048
     Dates: start: 20020101, end: 20020101
  4. FEMRING [Suspect]
     Indication: OOPHORECTOMY
     Dosage: VAGINAL
     Route: 067
     Dates: start: 20040101, end: 20040101

REACTIONS (6)
  - GLUCOSE TOLERANCE IMPAIRED [None]
  - HIGH DENSITY LIPOPROTEIN DECREASED [None]
  - LOW DENSITY LIPOPROTEIN INCREASED [None]
  - OEDEMA PERIPHERAL [None]
  - PAIN IN EXTREMITY [None]
  - THROMBOSIS [None]
